FAERS Safety Report 7146711-9 (Version None)
Quarter: 2010Q4

REPORT INFORMATION
  Report Type: 
  Country: None (occurrence: None)
  Receive Date: 20101208
  Receipt Date: 20101207
  Transmission Date: 20110411
  Serious: Yes (Other)
  Sender: FDA-Public Use
  Company Number: CA-ALLERGAN-1008277US

PATIENT
  Age: 54 Year
  Sex: Female

DRUGS (8)
  1. BOTULINUM TOXIN TYPE A [Suspect]
     Indication: TORTICOLLIS
     Dosage: 275 UNITS, SINGLE
     Route: 030
     Dates: start: 20100225, end: 20100225
  2. CLONIDINE [Concomitant]
     Dosage: 0.25 MG, UNK
  3. LORAZEPAM [Concomitant]
     Dosage: 2 MG, QHS
  4. PROPRANOLOL [Concomitant]
     Dosage: 40 MG, TID
  5. MEDROXYPROGESTERONE [Concomitant]
     Dosage: 10 MG, QD
  6. PAXIL [Concomitant]
     Dosage: 30 MG, QD
  7. OXYCODONE HCL [Concomitant]
     Dosage: 30 MG, TID
  8. DURAGESIC-100 [Concomitant]
     Dosage: 25 A?G, Q1HR

REACTIONS (2)
  - CONDITION AGGRAVATED [None]
  - DEPRESSION [None]
